FAERS Safety Report 4905969-4 (Version None)
Quarter: 2006Q1

REPORT INFORMATION
  Report Type: 
  Country: None (occurrence: None)
  Receive Date: 20060206
  Receipt Date: 20060124
  Transmission Date: 20060701
  Serious: Yes (Other)
  Sender: FDA-Public Use
  Company Number: 2006013758

PATIENT
  Age: 60 Year
  Sex: Male
  Weight: 84.369 kg

DRUGS (4)
  1. ZYRTEC [Suspect]
     Indication: HYPERSENSITIVITY
     Dosage: 10 MG (10 MG, 1 IN 1 D), ORAL
     Route: 048
  2. ZYRTEC-D 12 HOUR [Suspect]
     Indication: HYPERSENSITIVITY
     Dosage: (2 IN 1 D), ORAL
     Route: 048
  3. ADVAIR DISKUS 100/50 [Concomitant]
  4. SINGULAIR ^MERCK^ (MONTELUKAST SODIUM) [Concomitant]

REACTIONS (1)
  - PROSTATE CANCER [None]
